FAERS Safety Report 5447047-4 (Version None)
Quarter: 2007Q3

REPORT INFORMATION
  Report Type: 
  Country: None (occurrence: None)
  Receive Date: 20070801
  Receipt Date: 20070404
  Transmission Date: 20080115
  Serious: Yes (Hospitalization)
  Sender: FDA-Public Use
  Company Number: 154888USA

PATIENT
  Sex: Female

DRUGS (1)
  1. SALBUTAMOL SULFATE INHALATION, 0.09 MG (SALBUTAMOL) [Suspect]
     Indication: ASTHMA
     Dosage: ORAL
     Route: 048

REACTIONS (2)
  - ASTHMA [None]
  - DRUG INEFFECTIVE [None]
